FAERS Safety Report 13196584 (Version 3)
Quarter: 2017Q1

REPORT INFORMATION
  Report Type: Spontaneous
  Country: RU (occurrence: RU)
  Receive Date: 20170208
  Receipt Date: 20170302
  Transmission Date: 20170428
  Serious: Yes (Other)
  Sender: FDA-Public Use
  Company Number: RU-ELI_LILLY_AND_COMPANY-RU201702002806

PATIENT
  Age: 32 Year
  Sex: Male

DRUGS (5)
  1. ERBITUX [Suspect]
     Active Substance: CETUXIMAB
     Dosage: 500 MG, WEEKLY (1/W)
     Route: 065
     Dates: end: 20111125
  2. CISPLATIN. [Suspect]
     Active Substance: CISPLATIN
     Indication: SQUAMOUS CELL CARCINOMA OF THE ORAL CAVITY
     Dosage: 30 MG, UNKNOWN
     Route: 065
     Dates: start: 20111026, end: 20111125
  3. ERBITUX [Suspect]
     Active Substance: CETUXIMAB
     Indication: SQUAMOUS CELL CARCINOMA OF THE ORAL CAVITY
     Dosage: 800 MG, SINGLE
     Route: 065
     Dates: start: 20111026
  4. ERBITUX [Suspect]
     Active Substance: CETUXIMAB
     Dosage: 500 MG, WEEKLY (1/W)
     Route: 065
     Dates: end: 20111229
  5. ERBITUX [Suspect]
     Active Substance: CETUXIMAB
     Dosage: 800 MG, UNKNOWN
     Route: 065
     Dates: start: 20111207

REACTIONS (1)
  - Bone disorder [Unknown]
